FAERS Safety Report 4926524-6 (Version None)
Quarter: 2006Q1

REPORT INFORMATION
  Report Type: 
  Country: None (occurrence: None)
  Receive Date: 20060228
  Receipt Date: 20050425
  Transmission Date: 20060701
  Serious: No
  Sender: FDA-Public Use
  Company Number: US-GLAXOSMITHKLINE-A0555614A

PATIENT
  Age: 34 Year
  Sex: Female
  Weight: 61.4 kg

DRUGS (2)
  1. LAMICTAL [Suspect]
     Indication: BIPOLAR DISORDER
     Dosage: 25MG PER DAY
     Route: 048
     Dates: start: 20041220, end: 20050404
  2. GEODON [Concomitant]
     Dosage: 180MG PER DAY

REACTIONS (1)
  - RASH [None]
